FAERS Safety Report 7810394-2 (Version None)
Quarter: 2011Q4

REPORT INFORMATION
  Report Type: 
  Country: None (occurrence: None)
  Receive Date: 20111012
  Receipt Date: 20111003
  Transmission Date: 20120403
  Serious: Yes (Hospitalization)
  Sender: FDA-Public Use
  Company Number: BR-ASTRAZENECA-2011SE59795

PATIENT
  Age: 72 Year
  Sex: Male

DRUGS (9)
  1. ATENOLOL [Concomitant]
     Dosage: UP TO TID PRN
     Route: 048
     Dates: start: 20020101
  2. SIMVASTATIN [Concomitant]
     Route: 048
     Dates: start: 20020101
  3. CLONAZEPAM [Concomitant]
     Route: 048
     Dates: start: 20020101
  4. SOMALGIN CARDIO [Concomitant]
     Route: 048
     Dates: start: 20020101
  5. ISOSORBIDE MONONITRATE [Concomitant]
     Dosage: BID
     Route: 048
     Dates: start: 20020101
  6. ISORDIL [Concomitant]
     Route: 048
     Dates: start: 20110601
  7. ATENOLOL [Concomitant]
     Dosage: BID
     Route: 048
     Dates: start: 20020101
  8. ATACAND [Suspect]
     Route: 048
     Dates: start: 20110601, end: 20110801
  9. ATACAND HCT [Suspect]
     Dosage: 16/12.5 MG
     Route: 048
     Dates: start: 20020101, end: 20110801

REACTIONS (5)
  - CHEST PAIN [None]
  - FATIGUE [None]
  - DRUG DOSE OMISSION [None]
  - VENOUS OCCLUSION [None]
  - DYSPNOEA [None]
